FAERS Safety Report 4424667-7 (Version None)
Quarter: 2004Q3

REPORT INFORMATION
  Report Type: 
  Country: None (occurrence: None)
  Receive Date: 20040719
  Receipt Date: 20040428
  Transmission Date: 20050211
  Serious: Yes (Hospitalization)
  Sender: FDA-Public Use
  Company Number: 196909

PATIENT
  Age: 55 Year
  Sex: Female
  Weight: 61.6892 kg

DRUGS (2)
  1. AVONEX [Suspect]
     Indication: MULTIPLE SCLEROSIS
     Dosage: 30 MCG QW IM
     Route: 030
     Dates: start: 20040414
  2. TOPAMAX [Concomitant]

REACTIONS (1)
  - URINARY TRACT INFECTION [None]
